FAERS Safety Report 21890732 (Version 1)
Quarter: 2023Q1

REPORT INFORMATION
  Report Type: Spontaneous
  Country: FR (occurrence: FR)
  Receive Date: 20230120
  Receipt Date: 20230120
  Transmission Date: 20230418
  Serious: Yes (Other)
  Sender: FDA-Public Use
  Company Number: None

PATIENT
  Age: 70 Year
  Sex: Female

DRUGS (1)
  1. TOBREX [Suspect]
     Active Substance: TOBRAMYCIN
     Indication: Blepharitis
     Dosage: 3 DRP, QD (1 GOUTTE 3X/J)
     Route: 031
     Dates: start: 20221122, end: 20221125

REACTIONS (1)
  - Eye haemorrhage [Recovered/Resolved]

NARRATIVE: CASE EVENT DATE: 20221125
